FAERS Safety Report 13898369 (Version 3)
Quarter: 2017Q4

REPORT INFORMATION
  Report Type: Spontaneous
  Country: HU (occurrence: HU)
  Receive Date: 20170823
  Receipt Date: 20171002
  Transmission Date: 20180320
  Serious: Yes (Life-Threatening, Hospitalization, Other)
  Sender: FDA-Public Use
  Company Number: HU-BAYER-2017-155847

PATIENT
  Age: 62 Year
  Sex: Female

DRUGS (1)
  1. ACETYLSALICYLIC ACID({=100 MG) [Suspect]
     Active Substance: ASPIRIN
     Indication: ANTICOAGULANT THERAPY
     Dosage: UNK

REACTIONS (15)
  - Shock [Recovered/Resolved]
  - Bradycardia [Recovered/Resolved]
  - Drug administration error [None]
  - Labelled drug-drug interaction medication error [None]
  - Circulatory collapse [Recovered/Resolved]
  - Angina unstable [Recovered/Resolved]
  - Coronary artery occlusion [Recovered/Resolved]
  - Vascular stent thrombosis [Recovered/Resolved]
  - Hypotension [Recovered/Resolved]
  - Cardiac arrest [Recovered/Resolved]
  - Electrocardiogram ST segment depression [Recovered/Resolved]
  - Haemorrhage coronary artery [Recovered/Resolved]
  - Angina pectoris [Recovered/Resolved]
  - Hyperfibrinolysis [None]
  - Cardiac tamponade [Recovered/Resolved]
